FAERS Safety Report 21184572 (Version 3)
Quarter: 2022Q4

REPORT INFORMATION
  Report Type: Spontaneous
  Country: US (occurrence: US)
  Receive Date: 20220808
  Receipt Date: 20221006
  Transmission Date: 20230113
  Serious: No
  Sender: FDA-Public Use
  Company Number: US-GLAXOSMITHKLINE-US2022114736

PATIENT
  Age: 62 Year
  Sex: Female

DRUGS (4)
  1. ZEJULA [Suspect]
     Active Substance: NIRAPARIB
     Indication: Ovarian cancer
     Dosage: 200 MG, QD (100 MG IN AM AND 100 MG IN PM)
     Dates: start: 20220707
  2. ZEJULA [Suspect]
     Active Substance: NIRAPARIB
     Dosage: 200 MG, QD
     Route: 048
  3. ZEJULA [Suspect]
     Active Substance: NIRAPARIB
     Dosage: 100 MG, QD
     Dates: start: 20220829
  4. ZEJULA [Suspect]
     Active Substance: NIRAPARIB
     Dosage: 200 MG, QD

REACTIONS (8)
  - Nausea [Recovering/Resolving]
  - Fatigue [Recovering/Resolving]
  - Catheter site pruritus [Recovered/Resolved]
  - Platelet count decreased [Unknown]
  - Neutrophil count decreased [Unknown]
  - Hypertension [Unknown]
  - Feeling abnormal [Unknown]
  - Off label use [Unknown]

NARRATIVE: CASE EVENT DATE: 20220701
